FAERS Safety Report 9305831 (Version 1)
Quarter: 2013Q2

REPORT INFORMATION
  Report Type: Spontaneous
  Country: US (occurrence: US)
  Receive Date: 20130523
  Receipt Date: 20130523
  Transmission Date: 20140414
  Serious: No
  Sender: FDA-Public Use
  Company Number: US-PFIZER INC-2013156279

PATIENT
  Age: 70 Year
  Sex: Female
  Weight: 61.22 kg

DRUGS (2)
  1. ADVIL [Suspect]
     Indication: BACK PAIN
     Dosage: 400 MG, TWO TIMES A DAY
     Route: 048
     Dates: start: 20130518, end: 20130520
  2. ATENOLOL [Concomitant]
     Indication: HYPERTENSION
     Dosage: UNK, ONCE A DAY

REACTIONS (1)
  - Dysuria [Unknown]
